FAERS Safety Report 22140317 (Version 1)
Quarter: 2023Q1

REPORT INFORMATION
  Report Type: Spontaneous
  Country: FR (occurrence: FR)
  Receive Date: 20230327
  Receipt Date: 20230327
  Transmission Date: 20230418
  Serious: Yes (Hospitalization, Other)
  Sender: FDA-Public Use
  Company Number: FR-AFSSAPS-SE2023000155

PATIENT
  Age: 20 Year
  Sex: Female
  Weight: 91 kg

DRUGS (2)
  1. ACETAMINOPHEN [Suspect]
     Active Substance: ACETAMINOPHEN
     Indication: Toxicity to various agents
     Dosage: 12 GRAM,(1 TOTAL)
     Route: 048
     Dates: start: 20201110, end: 20201110
  2. PIVMECILLINAM HYDROCHLORIDE [Suspect]
     Active Substance: PIVMECILLINAM HYDROCHLORIDE
     Indication: Toxicity to various agents
     Dosage: 400 MILLIGRAM
     Route: 048
     Dates: start: 20201110, end: 20201110

REACTIONS (4)
  - Analgesic drug level increased [Recovered/Resolved]
  - Intentional overdose [Recovered/Resolved]
  - Hepatic cytolysis [Recovered/Resolved]
  - Prothrombin time shortened [Recovered/Resolved]

NARRATIVE: CASE EVENT DATE: 20201110
